FAERS Safety Report 13828711 (Version 1)
Quarter: 2017Q3

REPORT INFORMATION
  Report Type: Spontaneous
  Country: US (occurrence: US)
  Receive Date: 20170802
  Receipt Date: 20170802
  Transmission Date: 20171127
  Serious: Yes (Hospitalization)
  Sender: FDA-Public Use
  Company Number: None

PATIENT
  Age: 56 Year
  Sex: Male
  Weight: 83.25 kg

DRUGS (1)
  1. BACLOFEN. [Suspect]
     Active Substance: BACLOFEN

REACTIONS (13)
  - Muscle rigidity [None]
  - Paranoia [None]
  - Back pain [None]
  - Hyperventilation [None]
  - Panic attack [None]
  - Disorientation [None]
  - Pain [None]
  - Depressed mood [None]
  - Confusional state [None]
  - Muscle spasms [None]
  - Hallucination, auditory [None]
  - Road traffic accident [None]
  - Anxiety [None]

NARRATIVE: CASE EVENT DATE: 20170722
